FAERS Safety Report 19788541 (Version 1)
Quarter: 2021Q3

REPORT INFORMATION
  Report Type: Spontaneous
  Country: CN (occurrence: CN)
  Receive Date: 20210903
  Receipt Date: 20210903
  Transmission Date: 20211014
  Serious: Yes (Hospitalization)
  Sender: FDA-Public Use
  Company Number: CN-BAXTER-2021BAX027367

PATIENT
  Age: 19 Year
  Sex: Male
  Weight: 63 kg

DRUGS (12)
  1. 0.9% SODIUM CHLORIDE INJECTION [Suspect]
     Active Substance: SODIUM CHLORIDE
     Dosage: VINCRISTINE SULFATE + 0.9% SODIUM CHLORIDE, DOSE RE?INTRODUCED
     Route: 041
     Dates: start: 202108
  2. ENDOXAN [Suspect]
     Active Substance: CYCLOPHOSPHAMIDE
     Dosage: CYCLOPHOSPHAMIDE + 0.9% SODIUM CHLORIDE, DOSE RE?INTRODUCED
     Route: 041
     Dates: start: 202108
  3. 5% GLUCOSE  INJECTION [Suspect]
     Active Substance: DEXTROSE
     Indication: MEDICATION DILUTION
     Dosage: PIRARUBICIN HYDROCHLORIDE 50 MG + GLUCOSE INJECTION 500 ML
     Route: 041
     Dates: start: 20210810, end: 20210810
  4. PIRARUBICIN HYDROCHLORIDE [Suspect]
     Active Substance: PIRARUBICIN HYDROCHLORIDE
     Indication: ACUTE LYMPHOCYTIC LEUKAEMIA
     Dosage: PIRARUBICIN HYDROCHLORIDE 50 MG + GLUCOSE INJECTION 500 ML
     Route: 041
     Dates: start: 20210810, end: 20210810
  5. 0.9% SODIUM CHLORIDE INJECTION [Suspect]
     Active Substance: SODIUM CHLORIDE
     Indication: MEDICATION DILUTION
     Dosage: CYCLOPHOSPHAMIDE 500 MG + 0.9% SODIUM CHLORIDE 250 ML
     Route: 041
     Dates: start: 20210807, end: 20210809
  6. 5% GLUCOSE  INJECTION [Suspect]
     Active Substance: DEXTROSE
     Dosage: PIRARUBICIN HYDROCHLORIDE  + GLUCOSE, DOSE RE?INTRODUCED
     Route: 041
  7. VINCRISTINE SULFATE. [Suspect]
     Active Substance: VINCRISTINE SULFATE
     Dosage: VINCRISTINE SULFATE + 0.9% SODIUM CHLORIDE, DOSE RE?INTRODUCED
     Route: 041
     Dates: start: 202108
  8. VINCRISTINE SULFATE. [Suspect]
     Active Substance: VINCRISTINE SULFATE
     Indication: ACUTE LYMPHOCYTIC LEUKAEMIA
     Dosage: VINCRISTINE SULFATE 2 MG + 0.9% SODIUM CHLORIDE 50 ML
     Route: 041
     Dates: start: 20210810, end: 20210817
  9. PIRARUBICIN HYDROCHLORIDE [Suspect]
     Active Substance: PIRARUBICIN HYDROCHLORIDE
     Dosage: PIRARUBICIN HYDROCHLORIDE + GLUCOSE, DOSE RE?INTRODUCED
     Route: 041
     Dates: start: 202108
  10. ENDOXAN [Suspect]
     Active Substance: CYCLOPHOSPHAMIDE
     Indication: ACUTE LYMPHOCYTIC LEUKAEMIA
     Dosage: CYCLOPHOSPHAMIDE 500 MG + 0.9% SODIUM CHLORIDE 250 ML
     Route: 041
     Dates: start: 20210807, end: 20210809
  11. 0.9% SODIUM CHLORIDE INJECTION [Suspect]
     Active Substance: SODIUM CHLORIDE
     Dosage: CYCLOPHOSPHAMIDE + 0.9% SODIUM CHLORIDE, DOSE RE?INTRODUCED
     Route: 041
     Dates: start: 202108
  12. 0.9% SODIUM CHLORIDE INJECTION [Suspect]
     Active Substance: SODIUM CHLORIDE
     Dosage: VINCRISTINE SULFATE 2 MG + 0.9% SODIUM CHLORIDE 50 ML
     Route: 041
     Dates: start: 20210810, end: 20210817

REACTIONS (1)
  - Myelosuppression [Recovering/Resolving]

NARRATIVE: CASE EVENT DATE: 20210819
